FAERS Safety Report 21073125 (Version 2)
Quarter: 2022Q3

REPORT INFORMATION
  Report Type: Spontaneous
  Country: US (occurrence: US)
  Receive Date: 20220712
  Receipt Date: 20220810
  Transmission Date: 20221027
  Serious: No
  Sender: FDA-Public Use
  Company Number: US-SA-SAC20220711001831

PATIENT
  Age: 8 Year
  Sex: Female
  Weight: 33 kg

DRUGS (2)
  1. DUPIXENT [Suspect]
     Active Substance: DUPILUMAB
     Indication: Dermatitis atopic
     Dosage: 200 MG, QOW
     Route: 058
  2. PARAFFIN [Concomitant]
     Active Substance: PARAFFIN
     Indication: Oral mucosal exfoliation
     Dosage: UNK

REACTIONS (2)
  - Injection site pain [Unknown]
  - Sunburn [Unknown]
